FAERS Safety Report 9439982 (Version 2)
Quarter: 2013Q3

REPORT INFORMATION
  Report Type: Report from Study
  Country: US (occurrence: US)
  Receive Date: 20130805
  Receipt Date: 20130829
  Transmission Date: 20140515
  Serious: Yes (Hospitalization, Other)
  Sender: FDA-Public Use
  Company Number: US-BAYER-2013-083333

PATIENT
  Age: 55 Year
  Sex: Female

DRUGS (2)
  1. NEXAVAR/SORAFENIB [Suspect]
     Indication: THYROID CANCER
     Dosage: DAILY DOSE 800 MG
     Route: 048
     Dates: start: 20130629, end: 20130708
  2. NEXAVAR/SORAFENIB [Suspect]
     Indication: THYROID CANCER
     Dosage: UNK
     Dates: start: 201307, end: 2013

REACTIONS (10)
  - Device dislocation [None]
  - Fistula [None]
  - Pyrexia [None]
  - Abdominal discomfort [None]
  - Vomiting [None]
  - Off label use [None]
  - Nausea [None]
  - Retching [None]
  - Decreased appetite [None]
  - Thyroid cancer [None]
